FAERS Safety Report 4346178-X (Version None)
Quarter: 2004Q2

REPORT INFORMATION
  Report Type: 
  Country: None (occurrence: None)
  Receive Date: 20040423
  Receipt Date: 20040423
  Transmission Date: 20050107
  Serious: Yes (Other)
  Sender: FDA-Public Use
  Company Number: None

PATIENT
  Sex: Female

DRUGS (1)
  1. NAFCILLIN SODIUM [Suspect]
     Indication: POSTOPERATIVE INFECTION
     Dosage: 2 GM Q 4 HRS
     Dates: start: 20040416, end: 20040418

REACTIONS (1)
  - RASH [None]
